FAERS Safety Report 15995805 (Version 1)
Quarter: 2019Q1

REPORT INFORMATION
  Report Type: Spontaneous
  Country: CH (occurrence: CH)
  Receive Date: 20190222
  Receipt Date: 20190222
  Transmission Date: 20190418
  Serious: Yes (Death, Hospitalization, Other)
  Sender: FDA-Public Use
  Company Number: CH-ALLERGAN-1906964US

PATIENT
  Age: 47 Year
  Sex: Female

DRUGS (21)
  1. PIPERACILLIN AND TAZOBACTAM [Interacting]
     Active Substance: PIPERACILLIN SODIUM\TAZOBACTAM SODIUM
     Indication: INFECTION
     Dosage: 4500 MG, TID
     Route: 041
     Dates: start: 20190120
  2. ELTROXIN [Concomitant]
     Active Substance: LEVOTHYROXINE
     Indication: HYPOTHYROIDISM
     Dosage: 75 ?G, QD
     Route: 048
     Dates: start: 201804
  3. DUSPATALIN [Concomitant]
     Active Substance: MEBEVERINE HYDROCHLORIDE
     Indication: IRRITABLE BOWEL SYNDROME
     Dosage: 400 MG, QD
     Route: 048
     Dates: start: 20181119
  4. SYMBICORT [Concomitant]
     Active Substance: BUDESONIDE\FORMOTEROL FUMARATE DIHYDRATE
     Indication: CHRONIC OBSTRUCTIVE PULMONARY DISEASE
     Dosage: 2 DF, QD (2 INHALATIONS/DAY)
     Route: 055
     Dates: start: 20181216
  5. VENTOLIN [Interacting]
     Active Substance: ALBUTEROL SULFATE
     Indication: CHRONIC OBSTRUCTIVE PULMONARY DISEASE
     Dosage: 100 ?G, PRN (100 MICROGRAMS IN RESERVE, MAXIMUM 4X/DAY; AS NECESSARY)
     Route: 055
     Dates: start: 20181214
  6. BETMIGA [Suspect]
     Active Substance: MIRABEGRON
     Indication: URINARY INCONTINENCE
     Dosage: 50 MG, QD
     Route: 048
     Dates: start: 201804
  7. DAFALGAN [Suspect]
     Active Substance: ACETAMINOPHEN
     Indication: PAIN
     Dosage: 1 G, PRN (1 G MAXIMUM 3X/DAY IN RESERVE; AS NECESSARY)
     Route: 048
     Dates: start: 20181121
  8. ZOLPIDEM [Concomitant]
     Active Substance: ZOLPIDEM\ZOLPIDEM TARTRATE
     Indication: SCHIZOAFFECTIVE DISORDER
     Dosage: 10 MG, PRN (10 MG/DAY IN RESERVE AT LEAST SINCE 26.11.2018; AS NECESSARY)
     Route: 048
     Dates: start: 20181126
  9. ESCITALOPRAM OXALATE - BP [Suspect]
     Active Substance: ESCITALOPRAM OXALATE
     Indication: SCHIZOAFFECTIVE DISORDER
     Dosage: 10 MG, QD (USUAL LONG TERM TREATMENT)
     Route: 048
  10. HALOPERIDOL. [Interacting]
     Active Substance: HALOPERIDOL
     Indication: AGITATION
     Dosage: 5 MG, BID
     Route: 048
     Dates: start: 20190120
  11. CLOPIN ECO [Suspect]
     Active Substance: CLOZAPINE
     Indication: SCHIZOAFFECTIVE DISORDER
     Dosage: 300 MG, QD
     Route: 048
     Dates: start: 20181220, end: 20190119
  12. TRANXILIUM [Concomitant]
     Active Substance: CLORAZEPATE DIPOTASSIUM
     Indication: SCHIZOAFFECTIVE DISORDER
     Dosage: 40 MG, QD
     Route: 048
     Dates: start: 20181119
  13. ATORVASTATINE [Concomitant]
     Active Substance: ATORVASTATIN
     Indication: HYPERCHOLESTEROLAEMIA
     Dosage: 20 MG, QD
     Route: 048
     Dates: start: 20181119
  14. INDERAL [Suspect]
     Active Substance: PROPRANOLOL HYDROCHLORIDE
     Indication: TACHYCARDIA
     Dosage: 40 MG, QD (USUAL TREATMENT SINCE SEVERAL YEARS)
     Route: 048
  15. METFIN [Suspect]
     Active Substance: METFORMIN HYDROCHLORIDE
     Indication: TYPE 2 DIABETES MELLITUS
     Dosage: 500 MG, QD
     Route: 048
     Dates: start: 20181119
  16. CERAZETTE [Concomitant]
     Indication: POLYCYSTIC OVARIES
     Dosage: 0.075 MG, QD
     Route: 048
     Dates: start: 20181130
  17. CLARITHROMYCIN. [Interacting]
     Active Substance: CLARITHROMYCIN
     Indication: INFECTION
     Dosage: 500 MG, BID
     Route: 048
     Dates: start: 20190120, end: 20190121
  18. CLOPIN ECO [Suspect]
     Active Substance: CLOZAPINE
     Dosage: 25 MG, QD
     Route: 048
     Dates: start: 20181204
  19. TEMESTA [LORAZEPAM] [Suspect]
     Active Substance: LORAZEPAM
     Indication: SCHIZOAFFECTIVE DISORDER
     Dosage: 2.5 MG, PRN (2.5 MG MAXIMUM 2X J EN SERVE DEPUIS AU MOINS MAI 2018; AS NECESSARY)
     Route: 048
     Dates: start: 201805
  20. CALCIUM SANDOZ D [Concomitant]
     Dosage: 1 DF, QD
     Route: 048
     Dates: start: 20181123
  21. SPASMO-URGENIN NEO [Concomitant]
     Active Substance: TROSPIUM
     Indication: URINARY INCONTINENCE
     Dosage: 40 MG, QD
     Route: 048
     Dates: start: 20190109

REACTIONS (8)
  - Drug interaction [Unknown]
  - Cardiac arrest [Fatal]
  - Oropharyngeal pain [Fatal]
  - Agranulocytosis [Fatal]
  - Pyrexia [Fatal]
  - Product use in unapproved indication [Unknown]
  - Dyspnoea [Fatal]
  - Cough [Fatal]

NARRATIVE: CASE EVENT DATE: 20190114
